FAERS Safety Report 5144661-0 (Version None)
Quarter: 2006Q4

REPORT INFORMATION
  Report Type: 
  Country: None (occurrence: None)
  Receive Date: 20061031
  Receipt Date: 20061017
  Transmission Date: 20070319
  Serious: Yes (Hospitalization)
  Sender: FDA-Public Use
  Company Number: 2006125768

PATIENT
  Age: 41 Year
  Sex: Male

DRUGS (1)
  1. ROGAINE [Suspect]
     Dosage: AS DIRECTED, TOPICAL
     Route: 061
     Dates: start: 20051201, end: 20051206

REACTIONS (3)
  - ACUTE MYOCARDIAL INFARCTION [None]
  - DYSPEPSIA [None]
  - LETHARGY [None]
